FAERS Safety Report 8342744-5 (Version None)
Quarter: 2012Q2

REPORT INFORMATION
  Report Type: 
  Country: None (occurrence: None)
  Receive Date: 20120503
  Receipt Date: 20120404
  Transmission Date: 20120825
  Serious: No
  Sender: FDA-Public Use
  Company Number: NXG-12-002

PATIENT
  Sex: Female

DRUGS (1)
  1. POLYETHYLENE GLYCOL 3350 [Suspect]
     Indication: BOWEL MOVEMENT IRREGULARITY
     Dosage: 17G/DAY    8G/DAY

REACTIONS (4)
  - ABDOMINAL PAIN UPPER [None]
  - INSOMNIA [None]
  - DIARRHOEA [None]
  - DYSPEPSIA [None]
